FAERS Safety Report 10653018 (Version 2)
Quarter: 2016Q1

REPORT INFORMATION
  Report Type: Spontaneous
  Country: US (occurrence: US)
  Receive Date: 20141215
  Receipt Date: 20160201
  Transmission Date: 20160525
  Serious: No
  Sender: FDA-Public Use
  Company Number: US-PFIZER INC-2014340151

PATIENT
  Age: 61 Year
  Sex: Female
  Weight: 91 kg

DRUGS (3)
  1. AROMASIN [Suspect]
     Active Substance: EXEMESTANE
     Indication: BREAST CANCER FEMALE
     Dosage: 25 MG, 1X/DAY
     Route: 048
  2. METFORMIN [Concomitant]
     Active Substance: METFORMIN HYDROCHLORIDE
     Indication: BLOOD GLUCOSE ABNORMAL
     Dosage: 500 MG, UNK
  3. LEVEMIR [Suspect]
     Active Substance: INSULIN DETEMIR
     Indication: BLOOD GLUCOSE ABNORMAL
     Dosage: 50 MG, 2X/DAY (50 MG IN THE MORNING AND 50 MG IN THE NIGHT)

REACTIONS (3)
  - Blood glucose fluctuation [Unknown]
  - Back disorder [Unknown]
  - Feeling hot [Unknown]

NARRATIVE: CASE EVENT DATE: 201411
